FAERS Safety Report 7455947-9 (Version None)
Quarter: 2011Q2

REPORT INFORMATION
  Report Type: 
  Country: None (occurrence: None)
  Receive Date: 20110503
  Receipt Date: 20110427
  Transmission Date: 20111010
  Serious: Yes (Hospitalization, Other)
  Sender: FDA-Public Use
  Company Number: PHHY2011GB05693

PATIENT
  Age: 60 Year
  Sex: Female

DRUGS (6)
  1. DOSULEPIN [Suspect]
     Indication: DEPRESSION
     Dosage: 50 MG, QD
  2. DIAZEPAM [Suspect]
  3. CITALOPRAM [Suspect]
  4. ATENOLOL [Suspect]
     Dosage: 25 MG, QD
  5. ASPIRIN [Suspect]
     Dosage: 75 MG, QD
  6. SIMVASTATIN [Suspect]
     Dosage: 20 MG, QD

REACTIONS (39)
  - DEPRESSED MOOD [None]
  - INITIAL INSOMNIA [None]
  - IRRITABILITY [None]
  - OVERDOSE [None]
  - DEPRESSED LEVEL OF CONSCIOUSNESS [None]
  - DIARRHOEA [None]
  - FALL [None]
  - CYCLOTHYMIC DISORDER [None]
  - TREMOR [None]
  - MIDDLE INSOMNIA [None]
  - DELUSION [None]
  - CONFUSIONAL STATE [None]
  - NAUSEA [None]
  - LEUKOPLAKIA ORAL [None]
  - MENTAL IMPAIRMENT [None]
  - DEPRESSION [None]
  - AGGRESSION [None]
  - SYNCOPE [None]
  - FATIGUE [None]
  - MUSCLE TWITCHING [None]
  - MUSCLE ATROPHY [None]
  - WEIGHT DECREASED [None]
  - DIZZINESS [None]
  - MACROCYTOSIS [None]
  - ANAEMIA [None]
  - PANIC ATTACK [None]
  - VOMITING [None]
  - SELF-INJURIOUS IDEATION [None]
  - LETHARGY [None]
  - PAIN [None]
  - MYALGIA [None]
  - GENERALISED ANXIETY DISORDER [None]
  - HYPERHIDROSIS [None]
  - FEELING JITTERY [None]
  - TENSION [None]
  - DECREASED APPETITE [None]
  - ANXIETY [None]
  - SUICIDAL IDEATION [None]
  - C-REACTIVE PROTEIN ABNORMAL [None]
